FAERS Safety Report 5525119-3 (Version None)
Quarter: 2007Q4

REPORT INFORMATION
  Report Type: 
  Country: None (occurrence: None)
  Receive Date: 20071119
  Receipt Date: 20071113
  Transmission Date: 20080405
  Serious: Yes (Life-Threatening, Hospitalization)
  Sender: FDA-Public Use
  Company Number: 2007SP003740

PATIENT
  Age: 44 Year
  Sex: Male
  Weight: 108.8633 kg

DRUGS (6)
  1. LUNESTA [Suspect]
     Indication: INSOMNIA
     Dosage: 3 MG;HS;ORAL
     Route: 048
     Dates: start: 20071001, end: 20071012
  2. NADOLOL [Concomitant]
  3. LISINOPRIL [Concomitant]
  4. AMLODIPINE [Concomitant]
  5. LEXAPRO [Concomitant]
  6. ALLOPURINOL [Concomitant]

REACTIONS (10)
  - ASTHENIA [None]
  - BEDRIDDEN [None]
  - DIALYSIS [None]
  - DRUG HYPERSENSITIVITY [None]
  - FATIGUE [None]
  - GAIT DISTURBANCE [None]
  - INFLAMMATION [None]
  - MUSCLE SPASMS [None]
  - PARALYSIS [None]
  - RENAL FAILURE ACUTE [None]
